FAERS Safety Report 19118693 (Version 1)
Quarter: 2021Q2

REPORT INFORMATION
  Report Type: Spontaneous
  Country: US (occurrence: US)
  Receive Date: 20210410
  Receipt Date: 20210410
  Transmission Date: 20210717
  Serious: Yes (Life-Threatening)
  Sender: FDA-Public Use
  Company Number: NVSC2021US076780

PATIENT
  Sex: Female

DRUGS (1)
  1. AMOXICILLIN AND CLAVULANATE POTASSIUM [Suspect]
     Active Substance: AMOXICILLIN\CLAVULANATE POTASSIUM
     Indication: BRONCHITIS
     Dosage: UNK UNK, QD
     Route: 065
     Dates: start: 20210323, end: 20210327

REACTIONS (9)
  - Pyrexia [Recovered/Resolved]
  - Photophobia [Recovered/Resolved]
  - Fatigue [Recovered/Resolved]
  - Arthralgia [Recovered/Resolved]
  - Eye irritation [Recovered/Resolved]
  - Feeling abnormal [Recovered/Resolved]
  - Delusion [Recovered/Resolved]
  - Condition aggravated [Recovered/Resolved]
  - Arthritis [Recovered/Resolved]
